FAERS Safety Report 6519100-5 (Version None)
Quarter: 2009Q4

REPORT INFORMATION
  Report Type: 
  Country: None (occurrence: None)
  Receive Date: 20091228
  Receipt Date: 20091218
  Transmission Date: 20100525
  Serious: Yes (Hospitalization, Other)
  Sender: FDA-Public Use
  Company Number: FR-BAYER-200943563GPV

PATIENT
  Age: 62 Year
  Sex: Male

DRUGS (13)
  1. CIFLOX [Suspect]
     Indication: DRUG USE FOR UNKNOWN INDICATION
     Dosage: UNIT DOSE: 750 MG
     Route: 048
     Dates: start: 20091022, end: 20091119
  2. RIFADIN [Suspect]
     Indication: DRUG USE FOR UNKNOWN INDICATION
     Dosage: TOTAL DAILY DOSE: 1200 MG  UNIT DOSE: 600 MG
     Route: 048
     Dates: start: 20091022, end: 20091119
  3. CALCIPARINE [Suspect]
     Indication: DRUG USE FOR UNKNOWN INDICATION
     Route: 058
     Dates: start: 20091014, end: 20091119
  4. NEXIUM [Concomitant]
     Route: 048
     Dates: start: 20091101, end: 20091118
  5. NEXIUM [Concomitant]
     Route: 048
     Dates: start: 20091101
  6. CRESTOR [Concomitant]
     Route: 048
     Dates: start: 20091105
  7. AMLOR [Concomitant]
     Route: 048
     Dates: start: 20091022
  8. EUPRESSYL [Concomitant]
     Route: 048
     Dates: start: 20091022
  9. LANTUS [Concomitant]
     Route: 048
     Dates: start: 20091022
  10. TEMERIT [Concomitant]
     Route: 048
  11. KARDEGIC [Concomitant]
     Route: 048
  12. PARACETAMOL [Concomitant]
     Route: 048
  13. LOVENOX [Concomitant]

REACTIONS (4)
  - MOUTH ULCERATION [None]
  - ORAL DISORDER [None]
  - OROPHARYNGEAL BLISTERING [None]
  - THROMBOCYTOPENIA [None]
